FAERS Safety Report 5220753-2 (Version None)
Quarter: 2007Q1

REPORT INFORMATION
  Report Type: 
  Country: None (occurrence: None)
  Receive Date: 20070125
  Receipt Date: 20070125
  Transmission Date: 20070707
  Serious: Yes (Hospitalization)
  Sender: FDA-Public Use
  Company Number: None

PATIENT
  Sex: Male
  Weight: 95.709 kg

DRUGS (3)
  1. AVELOX [Suspect]
     Indication: BRONCHITIS
     Dosage: 400 MG PO QD
     Route: 048
     Dates: end: 20060109
  2. MEDROL [Concomitant]
  3. BENADRYL [Concomitant]

REACTIONS (2)
  - PRURITUS [None]
  - RASH [None]
